FAERS Safety Report 17508170 (Version 2)
Quarter: 2020Q2

REPORT INFORMATION
  Report Type: Report from Study
  Country: US (occurrence: US)
  Receive Date: 20200306
  Receipt Date: 20200501
  Transmission Date: 20200713
  Serious: No
  Sender: FDA-Public Use
  Company Number: NVSC2020US064281

PATIENT
  Sex: Male

DRUGS (2)
  1. ILARIS [Suspect]
     Active Substance: CANAKINUMAB
     Indication: CRYOPYRIN ASSOCIATED PERIODIC SYNDROME
     Dosage: 45 MG, EVERY 8 WEEKS
     Route: 058
     Dates: start: 20200108
  2. ILARIS [Suspect]
     Active Substance: CANAKINUMAB
     Dosage: 45 MG, EVERY 8 WEEKS
     Route: 058
     Dates: start: 20200129

REACTIONS (2)
  - Epistaxis [Unknown]
  - Pyrexia [Unknown]
